FAERS Safety Report 13162401 (Version 2)
Quarter: 2017Q1

REPORT INFORMATION
  Report Type: Spontaneous
  Country: BR (occurrence: BR)
  Receive Date: 20170130
  Receipt Date: 20170209
  Transmission Date: 20170428
  Serious: Yes (Other)
  Sender: FDA-Public Use
  Company Number: BR-RECORDATI RARE DISEASES-BR-R13005-17-00012

PATIENT
  Sex: Male

DRUGS (3)
  1. VINCRISTINE [Suspect]
     Active Substance: VINCRISTINE
     Indication: HAEMANGIOPERICYTOMA
     Route: 065
  2. COSMEGEN [Suspect]
     Active Substance: DACTINOMYCIN
     Indication: HAEMANGIOPERICYTOMA
     Route: 040
     Dates: start: 20130325, end: 20140228
  3. CYCLOPHOSPHAMIDE. [Suspect]
     Active Substance: CYCLOPHOSPHAMIDE
     Indication: HAEMANGIOPERICYTOMA
     Route: 065

REACTIONS (3)
  - Off label use [Unknown]
  - Otitis media [Recovered/Resolved with Sequelae]
  - Skin infection [Recovered/Resolved with Sequelae]
